FAERS Safety Report 16388818 (Version 1)
Quarter: 2019Q2

REPORT INFORMATION
  Report Type: Spontaneous
  Country: US (occurrence: US)
  Receive Date: 20190429
  Receipt Date: 20190429
  Transmission Date: 20190711
  Serious: Yes (Hospitalization)
  Sender: FDA-Public Use
  Company Number: None

PATIENT
  Sex: Male

DRUGS (9)
  1. HC VALERATE CREAM [Concomitant]
  2. DIFLUNISAL. [Concomitant]
     Active Substance: DIFLUNISAL
  3. CICLOPIROX CREAM [Suspect]
     Active Substance: CICLOPIROX
  4. CLOPIDOGREL [Concomitant]
     Active Substance: CLOPIDOGREL BISULFATE
  5. ESBRIET [Suspect]
     Active Substance: PIRFENIDONE
     Indication: IDIOPATHIC PULMONARY FIBROSIS
     Route: 048
     Dates: start: 20180112
  6. METFORMIN [Concomitant]
     Active Substance: METFORMIN HYDROCHLORIDE
  7. METOPROLOL. [Concomitant]
     Active Substance: METOPROLOL
  8. APAP/CODEINE [Concomitant]
     Active Substance: ACETAMINOPHEN\CODEINE PHOSPHATE
  9. MEGESTROL AC [Concomitant]

REACTIONS (1)
  - Respiratory disorder [None]
